FAERS Safety Report 17826256 (Version 4)
Quarter: 2020Q4

REPORT INFORMATION
  Report Type: Report from Study
  Country: US (occurrence: US)
  Receive Date: 20200526
  Receipt Date: 20201119
  Transmission Date: 20210113
  Serious: Yes (Life-Threatening, Congenital Anomaly, Other)
  Sender: FDA-Public Use
  Company Number: US-SA-2020SA102565

PATIENT

DRUGS (15)
  1. SARILUMAB [Suspect]
     Active Substance: SARILUMAB
     Indication: COVID-19
     Dosage: 400 MG, 1X
     Route: 042
     Dates: start: 20200329, end: 20200329
  2. HEPARIN [Concomitant]
     Active Substance: HEPARIN SODIUM
     Dosage: 8 U/KG/HR CONTINUOUS INFUSION
     Route: 042
     Dates: start: 20200402, end: 20200408
  3. CEFAZOLIN [Concomitant]
     Active Substance: CEFAZOLIN
     Indication: PNEUMONIA
     Dosage: 6 G, QD
     Route: 042
     Dates: start: 20200422, end: 20200428
  4. KEFLEX [Concomitant]
     Active Substance: CEPHALEXIN
     Indication: PNEUMONIA
     Dosage: 500 MG, BID
     Route: 042
     Dates: start: 20200416, end: 20200419
  5. METOPROLOL SUCCINATE. [Concomitant]
     Active Substance: METOPROLOL SUCCINATE
     Indication: HYPERTENSION
     Dosage: 25 MG, BID
     Route: 048
     Dates: start: 20200412
  6. SARILUMAB [Suspect]
     Active Substance: SARILUMAB
     Dosage: 400 MG, 1X
     Route: 042
     Dates: start: 20200423, end: 20200423
  7. VANCOMYCIN [Concomitant]
     Active Substance: VANCOMYCIN
     Indication: PNEUMONIA
     Dosage: 2500 MG, TIMES ONE DOSE
     Route: 042
     Dates: start: 20200327, end: 20200327
  8. HEPARIN [Concomitant]
     Active Substance: HEPARIN SODIUM
     Indication: EMBOLISM VENOUS
     Dosage: 5000 IU, Q8H
     Route: 042
     Dates: start: 20200411, end: 20200416
  9. AZITHROMYCIN ANHYDROUS. [Concomitant]
     Active Substance: AZITHROMYCIN ANHYDROUS
     Dosage: 250 MG, BID
     Route: 048
     Dates: start: 20200328, end: 20200331
  10. HEPARIN [Concomitant]
     Active Substance: HEPARIN SODIUM
     Dosage: 15 U/KG/HR CONTINOUS INFUSION
     Route: 042
     Dates: start: 20200416
  11. HYDROXYCHLOROQUINE [Concomitant]
     Active Substance: HYDROXYCHLOROQUINE
     Dosage: 200 MG, BID
     Route: 048
     Dates: start: 20200328, end: 20200406
  12. MAXIPIME [Concomitant]
     Active Substance: CEFEPIME HYDROCHLORIDE
     Indication: PNEUMONIA
     Dosage: 1 G, Q12 H
     Route: 042
     Dates: start: 20200329, end: 20200401
  13. HYDROXYCHLOROQUINE [Concomitant]
     Active Substance: HYDROXYCHLOROQUINE
     Indication: COVID-19
     Dosage: 400 MG, BID
     Route: 048
     Dates: start: 20200327, end: 20200327
  14. CEFEPIME [Concomitant]
     Active Substance: CEFEPIME HYDROCHLORIDE
     Indication: PNEUMONIA
     Dosage: 2 G, Q12H
     Route: 042
     Dates: start: 20200327, end: 20200329
  15. AZITHROMYCIN ANHYDROUS. [Concomitant]
     Active Substance: AZITHROMYCIN ANHYDROUS
     Indication: COVID-19
     Dosage: 500 MG, TIMES ONE DOSE
     Route: 042
     Dates: start: 20200327, end: 20200327

REACTIONS (7)
  - Staphylococcal infection [Recovered/Resolved]
  - Coronavirus infection [Recovered/Resolved with Sequelae]
  - Hypokalaemia [Recovered/Resolved]
  - Neurological symptom [Recovered/Resolved]
  - Hypernatraemia [Recovered/Resolved]
  - Gastrointestinal haemorrhage [Recovered/Resolved]
  - Pneumonia bacterial [Not Recovered/Not Resolved]

NARRATIVE: CASE EVENT DATE: 20200408
